FAERS Safety Report 12068017 (Version 1)
Quarter: 2016Q1

REPORT INFORMATION
  Report Type: Spontaneous
  Country: US (occurrence: US)
  Receive Date: 20160211
  Receipt Date: 20160211
  Transmission Date: 20160526
  Serious: No
  Sender: FDA-Public Use
  Company Number: US-SMITH AND NEPHEW, INC-2015SMT00240

PATIENT
  Age: 50 Year
  Sex: Male
  Weight: 120.18 kg

DRUGS (3)
  1. UNSPECIFIED DIABETES MEDICINE [Concomitant]
  2. REGRANEX [Suspect]
     Active Substance: BECAPLERMIN
     Indication: WOUND
     Dosage: UNK, 3X/DAY
     Route: 061
     Dates: start: 20150729
  3. UNSPECIFIED BLOOD PRESSURE MEDICINE [Concomitant]
     Active Substance: UNSPECIFIED INGREDIENT

REACTIONS (2)
  - Inappropriate schedule of drug administration [Unknown]
  - Application site infection [Recovering/Resolving]

NARRATIVE: CASE EVENT DATE: 20150729
